FAERS Safety Report 5113991-0 (Version None)
Quarter: 2006Q3

REPORT INFORMATION
  Report Type: 
  Country: None (occurrence: None)
  Receive Date: 20060921
  Receipt Date: 20060828
  Transmission Date: 20061208
  Serious: Yes (Other)
  Sender: FDA-Public Use
  Company Number: 2006-08-0270

PATIENT
  Age: 60 Year
  Sex: Female
  Weight: 64.8644 kg

DRUGS (26)
  1. SCH 503034 (S-P) (HCV PROTEASE INHIBITOR) [Concomitant]
     Indication: HEPATITIS C
     Dosage: 400 MG; TID; PO; SEE IMAGE
     Route: 048
     Dates: start: 20060227, end: 20060611
  2. SCH 503034 (S-P) (HCV PROTEASE INHIBITOR) [Concomitant]
     Indication: HEPATITIS C
     Dosage: 400 MG; TID; PO; SEE IMAGE
     Route: 048
     Dates: start: 20060612, end: 20060729
  3. PEG-INTRON [Suspect]
     Indication: HEPATITIS C
     Dosage: 96 MCG; /WK; SC
     Route: 058
     Dates: start: 20060220, end: 20060724
  4. REBETOL [Suspect]
     Dosage: 600 MG; QD; PO
     Route: 048
     Dates: start: 20060227, end: 20060729
  5. REBETOL [Suspect]
     Dosage: 600 MG; QD; PO
     Route: 048
     Dates: start: 20060227, end: 20060729
  6. ACTONEL [Concomitant]
  7. PROTONIX [Concomitant]
  8. CALCIUM W/VITAMIN D NOS [Concomitant]
  9. VITAMIN E [Concomitant]
  10. MULTIVITAMIN [Concomitant]
  11. PREMARIN [Concomitant]
  12. LORAZEPAM [Concomitant]
  13. RHINOCORT [Concomitant]
  14. ACETAMINOPHEN [Concomitant]
  15. AMBIEN [Concomitant]
  16. EXCEDRIN (MIGRAINE) [Concomitant]
  17. ADVAIR DISKUS 100/50 [Concomitant]
  18. ACETAMINOPHEN AND CODEINE PHOSPHATE [Concomitant]
  19. FLOVENT [Concomitant]
  20. VAGISIL [Concomitant]
  21. VICODIN [Concomitant]
  22. COMPAZINE [Concomitant]
  23. MYLANTA [Concomitant]
  24. TUMS [Concomitant]
  25. IMITREX [Concomitant]
  26. MAALOX PLUS [Concomitant]

REACTIONS (12)
  - ABDOMINAL DISCOMFORT [None]
  - ASTHENIA [None]
  - DEHYDRATION [None]
  - FATIGUE [None]
  - HAEMATOCRIT DECREASED [None]
  - HAEMOGLOBIN DECREASED [None]
  - HEART RATE INCREASED [None]
  - LUNG HYPERINFLATION [None]
  - NAUSEA [None]
  - ORAL INTAKE REDUCED [None]
  - ORTHOSTATIC HYPOTENSION [None]
  - SYNCOPE [None]
